FAERS Safety Report 7755180-7 (Version None)
Quarter: 2011Q3

REPORT INFORMATION
  Report Type: 
  Country: None (occurrence: None)
  Receive Date: 20110916
  Receipt Date: 20110524
  Transmission Date: 20111222
  Serious: No
  Sender: FDA-Public Use
  Company Number: US-GLAXOSMITHKLINE-A0928963A

PATIENT
  Age: 54 Year
  Sex: Male

DRUGS (5)
  1. METFORMIN HYDROCHLORIDE [Concomitant]
  2. INSULIN [Concomitant]
  3. LOVASTATIN [Concomitant]
  4. LISINOPRIL [Concomitant]
  5. PROMACTA [Suspect]
     Indication: IDIOPATHIC THROMBOCYTOPENIC PURPURA
     Dosage: 50MG PER DAY
     Route: 048
     Dates: start: 20110301, end: 20110520

REACTIONS (2)
  - MIGRAINE [None]
  - LACRIMATION INCREASED [None]
